FAERS Safety Report 6365916-8 (Version None)
Quarter: 2009Q3

REPORT INFORMATION
  Report Type: 
  Country: None (occurrence: None)
  Receive Date: 20090919
  Receipt Date: 20090826
  Transmission Date: 20100115
  Serious: No
  Sender: FDA-Public Use
  Company Number: US-ABBOTT-09P-163-0594086-00

PATIENT
  Sex: Male
  Weight: 104.42 kg

DRUGS (3)
  1. HUMIRA [Suspect]
     Indication: PSORIASIS
     Route: 058
     Dates: start: 20060101
  2. HUMIRA [Suspect]
     Indication: PSORIATIC ARTHROPATHY
     Route: 058
     Dates: start: 20090401, end: 20090701
  3. HUMIRA [Suspect]
     Route: 058

REACTIONS (9)
  - ARTHROPOD BITE [None]
  - BLOODY DISCHARGE [None]
  - MUCOSAL INFLAMMATION [None]
  - NODULE [None]
  - OEDEMA PERIPHERAL [None]
  - ORAL HERPES [None]
  - PURULENT DISCHARGE [None]
  - SKIN EXFOLIATION [None]
  - TOOTHACHE [None]
